FAERS Safety Report 7461547 (Version 7)
Quarter: 2014Q1

REPORT INFORMATION
  Report Type: Spontaneous
  Country: US (occurrence: US)
  Receive Date: 20100709
  Receipt Date: 20140103
  Transmission Date: 20141002
  Serious: Yes (Other)
  Sender: FDA-Public Use
  Company Number: PHHY2010US41989

PATIENT
  Sex: Female

DRUGS (4)
  1. RECLAST [Suspect]
     Indication: OSTEOPOROSIS
     Dosage: 5 MG, UNK
     Route: 042
     Dates: start: 20090228
  2. XANAX [Concomitant]
     Indication: ANXIETY
  3. CORTIZONE [Concomitant]
     Dosage: UNK
  4. CALCIUM + VITAMIN D                /01483701/ [Concomitant]
     Dosage: UKN

REACTIONS (27)
  - Fibromyalgia [Unknown]
  - Asthenia [Not Recovered/Not Resolved]
  - Arthralgia [Not Recovered/Not Resolved]
  - Myalgia [Not Recovered/Not Resolved]
  - Hypoaesthesia [Unknown]
  - Paraesthesia [Unknown]
  - Tooth infection [Unknown]
  - Toothache [Unknown]
  - Eye haemorrhage [Unknown]
  - Eye infection [Unknown]
  - Paralysis [Not Recovered/Not Resolved]
  - Diplegia [Unknown]
  - Bone pain [Unknown]
  - Muscle spasms [Unknown]
  - Trigeminal neuralgia [Unknown]
  - Visual acuity reduced [Unknown]
  - Gastric disorder [Unknown]
  - Crying [Unknown]
  - Mental disorder [Unknown]
  - Ligament sprain [Unknown]
  - Contusion [Unknown]
  - Joint swelling [Unknown]
  - Gastrointestinal inflammation [Unknown]
  - Weight decreased [Unknown]
  - Pain in extremity [Unknown]
  - Pain in jaw [Unknown]
  - Pain [Unknown]
